FAERS Safety Report 7092774-9 (Version None)
Quarter: 2010Q4

REPORT INFORMATION
  Report Type: 
  Country: None (occurrence: None)
  Receive Date: 20101110
  Receipt Date: 20101102
  Transmission Date: 20110411
  Serious: Yes (Death)
  Sender: FDA-Public Use
  Company Number: US-CELGENEUS-163-21880-10101695

PATIENT
  Sex: Male

DRUGS (16)
  1. REVLIMID [Suspect]
     Indication: MYELODYSPLASTIC SYNDROME
     Route: 048
     Dates: start: 20100827, end: 20101017
  2. INSULIN [Concomitant]
     Dosage: 3-6 UNITS
     Route: 065
     Dates: start: 20100930
  3. PREDNISONE [Concomitant]
     Route: 065
     Dates: start: 20100930
  4. LINEZOLID [Concomitant]
     Route: 065
     Dates: start: 20100930
  5. SEREVENT [Concomitant]
     Dosage: 1 PUFF
     Route: 055
  6. ACCOLATE [Concomitant]
     Route: 048
  7. ACETAMINOPHEN [Concomitant]
     Route: 048
  8. MULTI-VITAMINS [Concomitant]
     Route: 048
  9. PULMICORT [Concomitant]
     Dosage: TWICE A DAY
     Route: 055
  10. ATROVENT [Concomitant]
     Route: 055
  11. PRAVASTATIN [Concomitant]
     Route: 065
  12. LORAZEPAM [Concomitant]
     Route: 048
     Dates: start: 20100625
  13. METHYLPREDNISOLONE [Concomitant]
     Route: 048
     Dates: start: 20100915
  14. EXJADE [Concomitant]
     Route: 048
     Dates: start: 20100916
  15. GUAIFENESIN [Concomitant]
     Route: 065
     Dates: start: 20100924
  16. POLYETHYLENE GLYCOL [Concomitant]
     Route: 048
     Dates: start: 20100928

REACTIONS (1)
  - PULMONARY FIBROSIS [None]
